FAERS Safety Report 5540830-6 (Version None)
Quarter: 2007Q4

REPORT INFORMATION
  Report Type: 
  Country: None (occurrence: None)
  Receive Date: 20071129
  Receipt Date: 20070601
  Transmission Date: 20080405
  Serious: Yes (Hospitalization)
  Sender: FDA-Public Use
  Company Number: USA041082452

PATIENT
  Age: 49 Year
  Sex: Female

DRUGS (6)
  1. ZYPREXA [Suspect]
     Indication: BIPOLAR DISORDER
     Dosage: 10 MG, ORAL
     Route: 048
     Dates: start: 20010101, end: 20040101
  2. ZYPREXA [Suspect]
     Indication: BIPOLAR DISORDER
     Dosage: 5 MG, DAILY (1/D), ORAL
     Route: 048
     Dates: start: 20041119, end: 20050101
  3. ZOLOFT [Concomitant]
  4. KLONOPIN [Concomitant]
  5. LITHIUM CARBONATE [Concomitant]
  6. COGENTIN [Concomitant]

REACTIONS (4)
  - BLEPHAROSPASM [None]
  - BRUXISM [None]
  - DEPRESSION [None]
  - THROAT IRRITATION [None]
